FAERS Safety Report 8371284-2 (Version None)
Quarter: 2012Q2

REPORT INFORMATION
  Report Type: 
  Country: None (occurrence: None)
  Receive Date: 20120518
  Receipt Date: 20120508
  Transmission Date: 20120825
  Serious: Yes (Hospitalization)
  Sender: FDA-Public Use
  Company Number: US-JNJFOC-20120510364

PATIENT
  Sex: Male
  Weight: 58.2 kg

DRUGS (5)
  1. REMICADE [Suspect]
     Indication: CROHN'S DISEASE
     Route: 042
     Dates: start: 20090130
  2. BACTROBAN [Concomitant]
  3. PROBIOTICS [Concomitant]
  4. PENICILLIN [Concomitant]
  5. PRILOSEC [Concomitant]

REACTIONS (1)
  - CROHN'S DISEASE [None]
